FAERS Safety Report 4813800-0 (Version None)
Quarter: 2005Q4

REPORT INFORMATION
  Report Type: 
  Country: None (occurrence: None)
  Receive Date: 20051028
  Receipt Date: 20050322
  Transmission Date: 20060501
  Serious: No
  Sender: FDA-Public Use
  Company Number: US-GLAXOSMITHKLINE-A0550843A

PATIENT
  Age: 81 Year
  Sex: Male

DRUGS (5)
  1. ADVAIR DISKUS 100/50 [Suspect]
     Indication: ASTHMA
     Dosage: 1PUFF TWICE PER DAY
     Route: 055
  2. PRANDIN [Concomitant]
     Route: 065
  3. HYDROCHLOROTHIAZIDE [Concomitant]
  4. AVAPRO [Concomitant]
  5. PRAVACHOL [Concomitant]

REACTIONS (1)
  - BLOOD GLUCOSE INCREASED [None]
